FAERS Safety Report 20838998 (Version 2)
Quarter: 2023Q4

REPORT INFORMATION
  Report Type: Spontaneous
  Country: US (occurrence: US)
  Receive Date: 20220517
  Receipt Date: 20231005
  Transmission Date: 20240110
  Serious: Yes (Hospitalization)
  Sender: FDA-Public Use
  Company Number: US-SA-SAC20220516000694

PATIENT
  Age: 2 Year
  Sex: Male

DRUGS (8)
  1. ELOCTATE [Suspect]
     Active Substance: EFMOROCTOCOG ALFA
     Indication: Factor VIII deficiency
     Dosage: 1000 U, PRN
     Route: 042
     Dates: start: 202112
  2. ELOCTATE [Suspect]
     Active Substance: EFMOROCTOCOG ALFA
     Indication: Factor VIII deficiency
     Dosage: 1000 U, PRN
     Route: 042
     Dates: start: 202112
  3. ELOCTATE [Suspect]
     Active Substance: EFMOROCTOCOG ALFA
     Dosage: 1030 U, PRN
     Route: 042
     Dates: start: 20220424
  4. ELOCTATE [Suspect]
     Active Substance: EFMOROCTOCOG ALFA
     Dosage: 1030 U, PRN
     Route: 042
     Dates: start: 20220424
  5. ELOCTATE [Suspect]
     Active Substance: EFMOROCTOCOG ALFA
     Dosage: 1030 IU, PRN
     Route: 042
     Dates: start: 20220504
  6. ELOCTATE [Suspect]
     Active Substance: EFMOROCTOCOG ALFA
     Dosage: 1030 IU, PRN
     Route: 042
     Dates: start: 20220504
  7. ELOCTATE [Suspect]
     Active Substance: EFMOROCTOCOG ALFA
     Dosage: 1500 U
     Route: 042
     Dates: start: 202308
  8. ELOCTATE [Suspect]
     Active Substance: EFMOROCTOCOG ALFA
     Dosage: 1500 U
     Route: 042
     Dates: start: 202308

REACTIONS (8)
  - Post procedural complication [Unknown]
  - Wound secretion [Unknown]
  - Wound complication [Unknown]
  - Condition aggravated [Unknown]
  - Fall [Unknown]
  - Scratch [Unknown]
  - Skin laceration [Unknown]
  - Traumatic haemorrhage [Recovered/Resolved]

NARRATIVE: CASE EVENT DATE: 20220424
